FAERS Safety Report 7729278-3 (Version None)
Quarter: 2011Q3

REPORT INFORMATION
  Report Type: 
  Country: None (occurrence: None)
  Receive Date: 20110906
  Receipt Date: 20110903
  Transmission Date: 20111222
  Serious: No
  Sender: FDA-Public Use
  Company Number: US-PFIZER INC-2011206147

PATIENT
  Sex: Female
  Weight: 56.689 kg

DRUGS (3)
  1. VENLAFAXINE [Concomitant]
     Indication: HOT FLUSH
     Dosage: 150 MG, UNK
  2. LIPITOR [Suspect]
     Indication: BLOOD CHOLESTEROL INCREASED
     Dosage: 10 MG, 1X/DAY
     Route: 048
     Dates: start: 20110620
  3. ACTONEL [Concomitant]
     Indication: OSTEOPOROSIS
     Dosage: UNK

REACTIONS (1)
  - ABNORMAL DREAMS [None]
